FAERS Safety Report 8495543-8 (Version None)
Quarter: 2012Q3

REPORT INFORMATION
  Report Type: 
  Country: None (occurrence: None)
  Receive Date: 20120709
  Receipt Date: 20120702
  Transmission Date: 20120928
  Serious: Yes (Other)
  Sender: FDA-Public Use
  Company Number: US-ROCHE-1011565

PATIENT
  Sex: Male
  Weight: 96.702 kg

DRUGS (10)
  1. ATIVAN [Concomitant]
  2. SAW PALMETTO [Concomitant]
  3. CELEXA [Concomitant]
  4. KLONOPIN [Concomitant]
  5. HYDROCODONE BITARTRATE + ACETAMINOPHEN [Concomitant]
  6. TOPROL-XL [Concomitant]
  7. SHARK CARTILAGE [Concomitant]
     Dosage: AS DAILY
  8. ZELBORAF [Suspect]
     Indication: METASTATIC MALIGNANT MELANOMA
     Route: 048
     Dates: start: 20111014, end: 20120227
  9. OMEPRAZOLE [Concomitant]
     Route: 048
  10. FERROUS FUMARATE [Concomitant]

REACTIONS (16)
  - DECREASED APPETITE [None]
  - NEOPLASM [None]
  - FATIGUE [None]
  - NEUROPATHY PERIPHERAL [None]
  - NAUSEA [None]
  - MUSCLE SPASMS [None]
  - MYALGIA [None]
  - SKIN EXFOLIATION [None]
  - SINUS CONGESTION [None]
  - DIARRHOEA [None]
  - ARTHRALGIA [None]
  - NASOPHARYNGITIS [None]
  - SQUAMOUS CELL CARCINOMA [None]
  - SKIN PAPILLOMA [None]
  - ERYTHEMA [None]
  - PRURITUS [None]
